FAERS Safety Report 15449195 (Version 1)
Quarter: 2018Q3

REPORT INFORMATION
  Report Type: Report from Study
  Country: None (occurrence: US)
  Receive Date: 20180930
  Receipt Date: 20180930
  Transmission Date: 20181010
  Serious: Yes (Other)
  Sender: FDA-Public Use
  Company Number: US-ABBVIE-18K-163-2464754-00

PATIENT
  Sex: Male

DRUGS (1)
  1. HUMIRA [Suspect]
     Active Substance: ADALIMUMAB
     Indication: COLITIS ULCERATIVE
     Route: 058

REACTIONS (7)
  - Laceration [Recovering/Resolving]
  - Liver disorder [Unknown]
  - Pruritus generalised [Recovering/Resolving]
  - Wound infection staphylococcal [Recovered/Resolved]
  - Onycholysis [Recovered/Resolved]
  - Skin cancer [Recovered/Resolved]
  - Herpes zoster [Recovering/Resolving]
